FAERS Safety Report 23496286 (Version 1)
Quarter: 2024Q1

REPORT INFORMATION
  Report Type: Spontaneous
  Country: US (occurrence: None)
  Receive Date: 20240207
  Receipt Date: 20240207
  Transmission Date: 20240409
  Serious: Yes (Other)
  Sender: FDA-Public Use
  Company Number: None

PATIENT
  Age: 60 Year
  Sex: Female

DRUGS (1)
  1. FINGOLIMOD [Suspect]
     Active Substance: FINGOLIMOD
     Dosage: FREQUENCY : DAILY;?

REACTIONS (9)
  - Nonspecific reaction [None]
  - Muscle tightness [None]
  - Fatigue [None]
  - Nephrolithiasis [None]
  - Fall [None]
  - Hypoaesthesia [None]
  - Paraesthesia [None]
  - Chest discomfort [None]
  - Chest discomfort [None]
